FAERS Safety Report 6328743-3 (Version None)
Quarter: 2009Q3

REPORT INFORMATION
  Report Type: 
  Country: None (occurrence: None)
  Receive Date: 20090826
  Receipt Date: 20070808
  Transmission Date: 20100115
  Serious: Yes (Other)
  Sender: FDA-Public Use
  Company Number: US-ASTRAZENECA-2006UW08406

PATIENT
  Age: 42 Year
  Sex: Female
  Weight: 94.6 kg

DRUGS (14)
  1. SEROQUEL [Suspect]
     Indication: ANXIETY
     Dosage: 50-250 MG
     Route: 048
     Dates: start: 20011210, end: 20060209
  2. SEROQUEL [Suspect]
     Indication: DEPRESSION
     Dosage: 50-250 MG
     Route: 048
     Dates: start: 20011210, end: 20060209
  3. SEROQUEL [Suspect]
     Indication: SCHIZOPHRENIA
     Dosage: 50-250 MG
     Route: 048
     Dates: start: 20011210, end: 20060209
  4. SEROQUEL [Suspect]
     Dosage: 200 MG TO 400 MG
     Route: 048
     Dates: end: 20040101
  5. SEROQUEL [Suspect]
     Dosage: 200 MG TO 400 MG
     Route: 048
     Dates: end: 20040101
  6. SEROQUEL [Suspect]
     Dosage: 200 MG TO 400 MG
     Route: 048
     Dates: end: 20040101
  7. SEROQUEL [Suspect]
     Dosage: 50-300 MG
     Route: 048
     Dates: start: 20080103
  8. SEROQUEL [Suspect]
     Dosage: 50-300 MG
     Route: 048
     Dates: start: 20080103
  9. SEROQUEL [Suspect]
     Dosage: 50-300 MG
     Route: 048
     Dates: start: 20080103
  10. NITROGLYCERIN [Concomitant]
     Dosage: 0.4-6.5 MG
     Route: 060
     Dates: start: 20010413
  11. XANAX [Concomitant]
     Dosage: 1.5-3.0 MG
     Route: 048
     Dates: start: 19970405
  12. ZOLOFT [Concomitant]
     Dosage: 100-300 MG
     Route: 048
     Dates: start: 19970405
  13. TRAZODONE HCL [Concomitant]
     Indication: INSOMNIA
     Route: 048
     Dates: start: 20010503
  14. PREDNISONE [Concomitant]
     Indication: CHRONIC OBSTRUCTIVE PULMONARY DISEASE
     Dosage: 10-50 MG
     Route: 048
     Dates: start: 20020529

REACTIONS (3)
  - DIABETES MELLITUS [None]
  - DIABETIC NEUROPATHY [None]
  - TYPE 2 DIABETES MELLITUS [None]
